FAERS Safety Report 20649107 (Version 1)
Quarter: 2022Q1

REPORT INFORMATION
  Report Type: Spontaneous
  Country: US (occurrence: None)
  Receive Date: 20220328
  Receipt Date: 20220328
  Transmission Date: 20220423
  Serious: Yes (Other)
  Sender: FDA-Public Use
  Company Number: None

PATIENT
  Age: 57 Year
  Sex: Female
  Weight: 92.8 kg

DRUGS (3)
  1. LAMOTRIGINE [Suspect]
     Active Substance: LAMOTRIGINE
     Indication: Bipolar disorder
     Dosage: OTHER FREQUENCY : QHS;?
     Route: 048
     Dates: start: 20220308, end: 20220328
  2. INVEGA SUSTENNA [Concomitant]
  3. DISORGANIZED [Concomitant]

REACTIONS (3)
  - Rash [None]
  - Depression [None]
  - Weight increased [None]

NARRATIVE: CASE EVENT DATE: 20220315
